FAERS Safety Report 9468846 (Version 1)
Quarter: 2013Q3

REPORT INFORMATION
  Report Type: Spontaneous
  Country: DK (occurrence: FR)
  Receive Date: 20130821
  Receipt Date: 20130821
  Transmission Date: 20140515
  Serious: Yes (Hospitalization)
  Sender: FDA-Public Use
  Company Number: FR-FRI-1000047801

PATIENT
  Sex: Female

DRUGS (9)
  1. CITALOPRAM [Suspect]
     Dosage: 1 DF
     Route: 048
  2. XARELTO [Suspect]
     Indication: ATRIAL FIBRILLATION
     Dosage: 15 MG
     Route: 048
     Dates: start: 20130405, end: 20130701
  3. LASILIX [Concomitant]
  4. TEMERIT [Concomitant]
  5. CRESTOR [Concomitant]
  6. PARIET [Concomitant]
  7. LYRICA [Concomitant]
  8. EFFERALGAN [Concomitant]
  9. MONOCRIXO [Concomitant]

REACTIONS (4)
  - Rectal haemorrhage [Recovered/Resolved]
  - Melaena [Recovered/Resolved]
  - Gastrointestinal haemorrhage [Recovered/Resolved]
  - Microcytic anaemia [Not Recovered/Not Resolved]
